FAERS Safety Report 9942497 (Version 1)
Quarter: 2014Q1

REPORT INFORMATION
  Report Type: Report from Study
  Country: US (occurrence: US)
  Receive Date: 20140303
  Receipt Date: 20140303
  Transmission Date: 20141002
  Serious: No
  Sender: FDA-Public Use
  Company Number: US-ABBVIE-13P-163-1044320-00

PATIENT
  Age: 61 Year
  Sex: Female

DRUGS (12)
  1. HUMIRA [Suspect]
     Indication: RHEUMATOID ARTHRITIS
     Dates: start: 20121119
  2. EFFEXOR XR [Concomitant]
     Indication: DEPRESSION
  3. LEFLUNOMIDE [Concomitant]
     Indication: ARTHRITIS
  4. LYRICA [Concomitant]
     Indication: FIBROMYALGIA
  5. BENZOTROPINE MESYLATE [Concomitant]
     Indication: TREMOR
  6. OMEPRAZOLE [Concomitant]
     Indication: GASTRIC DISORDER
  7. HYDROXYCHLOROQUINE SULFATE [Concomitant]
     Indication: ARTHRITIS
  8. MELOXICAM [Concomitant]
     Indication: ARTHRITIS
  9. CLONAZEPAM [Concomitant]
     Indication: INSOMNIA
  10. PRAMIPEXOLE DIHYDROCHLORIDE [Concomitant]
     Indication: ARTHRITIS
  11. RISPERIDONE [Concomitant]
     Indication: DEPRESSION
  12. DIVALPROEX [Concomitant]
     Indication: DEPRESSION

REACTIONS (1)
  - Muscle spasms [Not Recovered/Not Resolved]
